FAERS Safety Report 4534498-5 (Version None)
Quarter: 2004Q4

REPORT INFORMATION
  Report Type: 
  Country: None (occurrence: None)
  Receive Date: 20041221
  Receipt Date: 20041004
  Transmission Date: 20050328
  Serious: Yes (Disabling)
  Sender: FDA-Public Use
  Company Number: 2004AP000801

PATIENT
  Age: 79 Year
  Sex: Female

DRUGS (6)
  1. CARBIDOPA AND LEVODOPA [Suspect]
     Indication: PARKINSON'S DISEASE
     Dosage: 5 TAB; EVERY DAY (DAILY); ORAL
     Route: 048
     Dates: start: 20040911, end: 20040930
  2. ATENOLOL [Concomitant]
  3. ISORDIL [Concomitant]
  4. FUROSEMIDE [Concomitant]
  5. TIAZAC [Concomitant]
  6. DOZEPIN [Concomitant]

REACTIONS (9)
  - ASTHENIA [None]
  - BALANCE DISORDER [None]
  - DIZZINESS [None]
  - DYSPEPSIA [None]
  - FALL [None]
  - IMMOBILE [None]
  - MOVEMENT DISORDER [None]
  - PHARMACEUTICAL PRODUCT COMPLAINT [None]
  - STOMACH DISCOMFORT [None]
